FAERS Safety Report 4384889-0 (Version None)
Quarter: 2004Q2

REPORT INFORMATION
  Report Type: 
  Country: None (occurrence: None)
  Receive Date: 20040622
  Receipt Date: 20040609
  Transmission Date: 20050107
  Serious: Yes (Death, Life-Threatening)
  Sender: FDA-Public Use
  Company Number: JP-JNJFOC-20040603393

PATIENT
  Age: 66 Year
  Sex: Female
  Weight: 53 kg

DRUGS (12)
  1. REMICADE [Suspect]
     Indication: RHEUMATOID ARTHRITIS
     Dosage: 3 MG/KG
     Dates: start: 20040214
  2. REMICADE [Suspect]
     Indication: RHEUMATOID ARTHRITIS
     Dosage: 3 MG/KG
     Dates: start: 20040228
  3. REMICADE [Suspect]
     Indication: RHEUMATOID ARTHRITIS
     Dosage: 3 MG/KG
     Dates: start: 20040327
  4. RHEUMATREX [Suspect]
     Indication: RHEUMATOID ARTHRITIS
     Dosage: SEE IMAGE
     Route: 048
     Dates: start: 20000505, end: 20000515
  5. RHEUMATREX [Suspect]
     Indication: RHEUMATOID ARTHRITIS
     Dosage: SEE IMAGE
     Route: 048
     Dates: start: 20000612, end: 20040520
  6. CLINORIL [Suspect]
     Indication: RHEUMATOID ARTHRITIS
     Dosage: 600 MG, 1 IN 1 DAY, ORAL
     Route: 048
     Dates: end: 20040520
  7. PREDNISOLONE [Concomitant]
  8. SOLU-CORTEF [Concomitant]
  9. SOLU-MEDROL [Concomitant]
  10. SELBEX (TEPRENONE) GRANULES [Concomitant]
  11. CARDENALIN (DOXAZOSIN MESILATE) TABLETS [Concomitant]
  12. NIVADIL (NILVADIPINE) TABLETS [Concomitant]

REACTIONS (14)
  - ANOREXIA [None]
  - ANTIBODY TEST ABNORMAL [None]
  - BLOOD LACTATE DEHYDROGENASE INCREASED [None]
  - CARDIAC FAILURE [None]
  - DRUG EFFECT DECREASED [None]
  - HEPATIC FAILURE [None]
  - LYMPHOMA [None]
  - MALAISE [None]
  - MULTI-ORGAN FAILURE [None]
  - PANCYTOPENIA [None]
  - PERICARDIAL EFFUSION [None]
  - PYREXIA [None]
  - RENAL FAILURE [None]
  - RESPIRATORY FAILURE [None]
